FAERS Safety Report 4490564-4 (Version None)
Quarter: 2004Q4

REPORT INFORMATION
  Report Type: 
  Country: None (occurrence: None)
  Receive Date: 20041027
  Receipt Date: 20041012
  Transmission Date: 20050328
  Serious: Yes (Hospitalization)
  Sender: FDA-Public Use
  Company Number: 9047

PATIENT
  Age: 45 Year
  Sex: Male

DRUGS (3)
  1. LEUCOVORIN [Suspect]
     Indication: PROPHYLACTIC CHEMOTHERAPY
     Dosage: 75 MG; PO
     Route: 048
     Dates: start: 20040827, end: 20040918
  2. UFT [Suspect]
     Indication: PROPHYLACTIC CHEMOTHERAPY
     Dosage: 3 G ; ORAL
     Route: 048
     Dates: start: 20040827, end: 20040918
  3. BACTERIA NOS [Concomitant]

REACTIONS (2)
  - HEPATIC FUNCTION ABNORMAL [None]
  - PYREXIA [None]
